FAERS Safety Report 9003361 (Version 1)
Quarter: 2013Q1

REPORT INFORMATION
  Report Type: Spontaneous
  Country: US (occurrence: US)
  Receive Date: 20130108
  Receipt Date: 20130108
  Transmission Date: 20140127
  Serious: Yes (Other)
  Sender: FDA-Public Use
  Company Number: CHPA2012US009297

PATIENT
  Sex: Female

DRUGS (5)
  1. EXCEDRIN EXTRA STRENGTH [Suspect]
     Indication: SOMNOLENCE
     Dosage: 2 A DAY, WHEN NEEDED
     Route: 048
  2. EXCEDRIN EXTRA STRENGTH [Suspect]
     Indication: SOMNOLENCE
     Dosage: 2 DF, UNK
     Route: 048
  3. NODOZ [Concomitant]
     Dosage: UNK
     Route: 048
     Dates: start: 2002, end: 200906
  4. ADVIL//IBUPROFEN [Concomitant]
     Indication: PAIN
     Dosage: UNK, UNK
  5. ANTIBIOTICS [Concomitant]
     Dosage: UNK, UNK

REACTIONS (3)
  - Lung neoplasm malignant [Recovered/Resolved]
  - Colitis ulcerative [Not Recovered/Not Resolved]
  - Off label use [Unknown]
